FAERS Safety Report 4558405-4 (Version None)
Quarter: 2005Q1

REPORT INFORMATION
  Report Type: 
  Country: None (occurrence: None)
  Receive Date: 20050114
  Receipt Date: 20050106
  Transmission Date: 20050727
  Serious: Yes (Hospitalization)
  Sender: FDA-Public Use
  Company Number: 2003-03248

PATIENT
  Age: 34 Year
  Sex: Male

DRUGS (1)
  1. IMMUCYST(BCG - IT (CONNAUGHT)), AVENTIS PASTEUR LTD.,  LOT NOT REP, I2 [Suspect]
     Indication: BLADDER CANCER
     Dosage: (1.0 DF); B.IN.,BLADDER
     Dates: start: 20030925

REACTIONS (5)
  - ARTHRALGIA [None]
  - ASTHENIA [None]
  - COUGH [None]
  - INFLUENZA LIKE ILLNESS [None]
  - PYREXIA [None]
